FAERS Safety Report 7996926-2 (Version None)
Quarter: 2011Q4

REPORT INFORMATION
  Report Type: 
  Country: None (occurrence: None)
  Receive Date: 20111216
  Receipt Date: 20111129
  Transmission Date: 20120403
  Serious: Yes (Hospitalization)
  Sender: FDA-Public Use
  Company Number: 2011-4351

PATIENT
  Age: 50 Year
  Sex: Female

DRUGS (3)
  1. RESTYLANE (HYALURONIC ACID) ABOBOTULINUMTOXIN A [Suspect]
     Indication: PRODUCT USED FOR UNKNOWN INDICATION
     Dosage: NOT REPORTED, ONCE
     Dates: start: 20110718, end: 20110718
  2. DYSPORT [Suspect]
     Indication: SKIN WRINKLING
     Dosage: 50 UNITS (50 UNITS, SINGLE CYCLE), INTRAMUSCULAR
     Route: 030
     Dates: start: 20110718, end: 20110718
  3. DYSPORT [Suspect]
     Indication: OFF LABEL USE
     Dosage: 50 UNITS (50 UNITS, SINGLE CYCLE), INTRAMUSCULAR
     Route: 030
     Dates: start: 20110718, end: 20110718

REACTIONS (2)
  - PRODUCT QUALITY ISSUE [None]
  - HYPERSENSITIVITY [None]
